FAERS Safety Report 5593954-1 (Version None)
Quarter: 2008Q1

REPORT INFORMATION
  Report Type: 
  Country: None (occurrence: None)
  Receive Date: 20080114
  Receipt Date: 20071227
  Transmission Date: 20080703
  Serious: Yes (Other)
  Sender: FDA-Public Use
  Company Number: ACO_00419_2008

PATIENT
  Sex: Female

DRUGS (8)
  1. TIZANIDINE HYDROCHLORIDE [Suspect]
     Indication: BACK PAIN
     Dosage: (4 MG ORAL)
     Route: 048
     Dates: start: 20071027, end: 20071029
  2. PREDNISONE [Suspect]
     Indication: BACK PAIN
     Dosage: (10 MG ORAL)
     Route: 048
     Dates: start: 20071027, end: 20071029
  3. AIRTAL (AIRTAL - ACECLOFENAC) [Suspect]
     Indication: BACK PAIN
     Dosage: (200 MG ORAL)
     Route: 048
     Dates: start: 20071027, end: 20071029
  4. AMOXICILLIN TRIHYDRATE [Suspect]
     Indication: EAR INFECTION
     Dosage: (1 G ORAL)
     Route: 048
     Dates: start: 20071027, end: 20071029
  5. GLYBURIDE AND METFORMIN HCL [Concomitant]
  6. LIVIAL [Concomitant]
  7. LANSOX [Concomitant]
  8. EUTIROX /00068001/ [Concomitant]

REACTIONS (3)
  - DYSPNOEA [None]
  - HYPERGLYCAEMIA [None]
  - IATROGENIC INJURY [None]
